FAERS Safety Report 8558964-0 (Version None)
Quarter: 2012Q3

REPORT INFORMATION
  Report Type: 
  Country: None (occurrence: None)
  Receive Date: 20120802
  Receipt Date: 20120724
  Transmission Date: 20120928
  Serious: Yes (Other)
  Sender: FDA-Public Use
  Company Number: JP-MSD-1206USA04977

PATIENT

DRUGS (4)
  1. ACTOS [Concomitant]
  2. AMARYL [Concomitant]
     Dates: start: 20090201
  3. SITAGLIPTIN PHOSPHATE [Suspect]
     Indication: TYPE 2 DIABETES MELLITUS
     Dosage: 50 MG, QD
     Route: 048
     Dates: start: 20100119
  4. METFORMIN HCL [Concomitant]

REACTIONS (1)
  - GASTRIC CANCER [None]
